FAERS Safety Report 9693916 (Version 2)
Quarter: 2013Q4

REPORT INFORMATION
  Report Type: Spontaneous
  Country: SE (occurrence: SE)
  Receive Date: 20131118
  Receipt Date: 20131118
  Transmission Date: 20140711
  Serious: Yes (Hospitalization, Disabling)
  Sender: FDA-Public Use
  Company Number: SE-ABBVIE-13P-150-1162090-00

PATIENT
  Sex: Female

DRUGS (3)
  1. DUODOPA [Suspect]
     Indication: PARKINSON^S DISEASE
     Dates: start: 20120905, end: 201310
  2. MADOPARK [Concomitant]
  3. SINEMET DEPOT (LEVODOPA/CARBIDOPA) [Concomitant]
     Route: 048

REACTIONS (5)
  - Polyneuropathy [Not Recovered/Not Resolved]
  - Pain [Unknown]
  - Paraesthesia [Unknown]
  - Paraesthesia [Unknown]
  - Hypoaesthesia [Unknown]
